FAERS Safety Report 8612538-1 (Version None)
Quarter: 2012Q3

REPORT INFORMATION
  Report Type: 
  Country: None (occurrence: None)
  Receive Date: 20120822
  Receipt Date: 20111006
  Transmission Date: 20120928
  Serious: No
  Sender: FDA-Public Use
  Company Number: US-ASTRAZENECA-2011SE60029

PATIENT
  Age: 57 Year
  Sex: Female
  Weight: 69.4 kg

DRUGS (4)
  1. CLONIDINE [Concomitant]
  2. ATACAND [Suspect]
     Indication: BLOOD PRESSURE ABNORMAL
     Route: 048
  3. SYMBICORT [Suspect]
     Route: 055
  4. SYBALIC [Concomitant]

REACTIONS (2)
  - DRUG INEFFECTIVE [None]
  - BLOOD PRESSURE FLUCTUATION [None]
